FAERS Safety Report 18437325 (Version 1)
Quarter: 2020Q4

REPORT INFORMATION
  Report Type: Spontaneous
  Country: ES (occurrence: ES)
  Receive Date: 20201028
  Receipt Date: 20201028
  Transmission Date: 20210114
  Serious: Yes (Other)
  Sender: FDA-Public Use
  Company Number: ES-ANIPHARMA-2020-ES-000147

PATIENT
  Sex: Female

DRUGS (3)
  1. ANASTROZOLE. [Suspect]
     Active Substance: ANASTROZOLE
     Indication: PRODUCT USED FOR UNKNOWN INDICATION
     Dosage: UNKNOWN DOSE AND FREQUENCY
     Route: 048
  2. MORPHINE [Concomitant]
     Active Substance: MORPHINE
     Route: 065
  3. TAMOXIFEN [Suspect]
     Active Substance: TAMOXIFEN
     Dosage: UNKNOWN DOSE AND FREQUENCY
     Route: 048

REACTIONS (9)
  - Arthralgia [Unknown]
  - Uterine polyp [Recovered/Resolved]
  - Fatigue [Unknown]
  - Bone pain [Recovered/Resolved]
  - Insomnia [Recovered/Resolved]
  - Musculoskeletal pain [Unknown]
  - Hot flush [Recovered/Resolved]
  - Pain in extremity [Unknown]
  - Uterine leiomyoma [Recovered/Resolved]
